FAERS Safety Report 6203339-2 (Version None)
Quarter: 2009Q2

REPORT INFORMATION
  Report Type: 
  Country: None (occurrence: None)
  Receive Date: 20090522
  Receipt Date: 20090522
  Transmission Date: 20091009
  Serious: Yes (Other)
  Sender: FDA-Public Use
  Company Number: None

PATIENT
  Sex: Male
  Weight: 83.9154 kg

DRUGS (1)
  1. AMPHETAMINE SALT COMB 20 MG. COREPHARMA [Suspect]
     Indication: ATTENTION DEFICIT/HYPERACTIVITY DISORDER
     Dosage: 20 MG. TID PO
     Route: 048
     Dates: start: 20090515, end: 20090516

REACTIONS (5)
  - INSOMNIA [None]
  - ORAL HERPES [None]
  - PRODUCT SUBSTITUTION ISSUE [None]
  - PRURITUS [None]
  - RECTAL HAEMORRHAGE [None]
